FAERS Safety Report 15584418 (Version 16)
Quarter: 2020Q3

REPORT INFORMATION
  Report Type: Report from Study
  Country: CA (occurrence: CA)
  Receive Date: 20181104
  Receipt Date: 20200924
  Transmission Date: 20201102
  Serious: Yes (Hospitalization, Other)
  Sender: FDA-Public Use
  Company Number: PHHY2014CA075459

PATIENT
  Age: 85 Year
  Sex: Male

DRUGS (8)
  1. SANDOSTATIN LAR DEPOT [Suspect]
     Active Substance: OCTREOTIDE ACETATE
     Indication: NEUROENDOCRINE TUMOUR
     Dosage: 30 MG, QMO (EVERY 28 DAYS)
     Route: 030
     Dates: start: 20140516, end: 2016
  2. SANDOSTATIN [Suspect]
     Active Substance: OCTREOTIDE ACETATE
  3. WARFARINE [Concomitant]
     Active Substance: WARFARIN
     Indication: PRODUCT USED FOR UNKNOWN INDICATION
     Dosage: UNK
     Route: 065
  4. SANDOSTATIN LAR DEPOT [Suspect]
     Active Substance: OCTREOTIDE ACETATE
     Dosage: 30 MG, QMO (ONCE A MONTH)
     Route: 030
     Dates: start: 2016, end: 20161110
  5. SANDOSTATIN [Suspect]
     Active Substance: OCTREOTIDE ACETATE
  6. SANDOSTATIN [Suspect]
     Active Substance: OCTREOTIDE ACETATE
     Indication: NEUROENDOCRINE TUMOUR
     Dosage: 100 UG, ONCE/SINGLE
     Route: 058
     Dates: start: 20140509, end: 20140509
  7. SANDOSTATIN LAR DEPOT [Suspect]
     Active Substance: OCTREOTIDE ACETATE
     Dosage: 40 MG, Q3W (EVERY 3 WEEKS)
     Route: 030
     Dates: start: 20140516
  8. SANDOSTATIN LAR DEPOT [Suspect]
     Active Substance: OCTREOTIDE ACETATE
     Dosage: 40 MG, Q3W (EVERY 3 WEEKS)
     Route: 030
     Dates: start: 20161208

REACTIONS (19)
  - Hypertension [Unknown]
  - Urine abnormality [Unknown]
  - Blood pressure diastolic decreased [Unknown]
  - Blood pressure systolic increased [Unknown]
  - Herpes zoster [Recovering/Resolving]
  - Stress [Unknown]
  - Malaise [Unknown]
  - Body temperature increased [Unknown]
  - Headache [Unknown]
  - Blood pressure increased [Unknown]
  - Prostatic disorder [Unknown]
  - Transient ischaemic attack [Recovering/Resolving]
  - Nasopharyngitis [Recovering/Resolving]
  - Productive cough [Not Recovered/Not Resolved]
  - Inappropriate schedule of product administration [Unknown]
  - Diarrhoea [Recovering/Resolving]
  - Urinary retention [Unknown]
  - Rash [Unknown]
  - Heart rate increased [Unknown]

NARRATIVE: CASE EVENT DATE: 201507
